FAERS Safety Report 4556548-2 (Version None)
Quarter: 2005Q1

REPORT INFORMATION
  Report Type: 
  Country: None (occurrence: None)
  Receive Date: 20050118
  Receipt Date: 20050104
  Transmission Date: 20050727
  Serious: Yes (Death)
  Sender: FDA-Public Use
  Company Number: MC200500003

PATIENT
  Age: 63 Year
  Sex: Female

DRUGS (2)
  1. ANGIOMAX [Suspect]
     Indication: DRUG USE FOR UNKNOWN INDICATION
     Dosage: 0.75 MG/KG, BOLUS, IV BOLUS
     Route: 040
     Dates: start: 20041201, end: 20041201
  2. INTEGRILIN [Concomitant]

REACTIONS (6)
  - ACIDOSIS [None]
  - CARDIAC ARREST [None]
  - DYSPNOEA [None]
  - HAEMATURIA [None]
  - POST PROCEDURAL COMPLICATION [None]
  - RETROPERITONEAL HAEMORRHAGE [None]
